FAERS Safety Report 13020912 (Version 1)
Quarter: 2016Q4

REPORT INFORMATION
  Report Type: Spontaneous
  Country: US (occurrence: US)
  Receive Date: 20161212
  Receipt Date: 20161212
  Transmission Date: 20170207
  Serious: No
  Sender: FDA-Public Use
  Company Number: None

PATIENT
  Age: 65 Year
  Sex: Male

DRUGS (1)
  1. EPCLUSA [Suspect]
     Active Substance: SOFOSBUVIR\VELPATASVIR
     Indication: CHRONIC HEPATITIS C

REACTIONS (7)
  - Pain [None]
  - Pulmonary pain [None]
  - Influenza like illness [None]
  - Headache [None]
  - Fatigue [None]
  - Asthenia [None]
  - Pneumonia [None]

NARRATIVE: CASE EVENT DATE: 20161209
